FAERS Safety Report 15946963 (Version 8)
Quarter: 2020Q2

REPORT INFORMATION
  Report Type: Spontaneous
  Country: US (occurrence: US)
  Receive Date: 20190211
  Receipt Date: 20200514
  Transmission Date: 20200713
  Serious: Yes (Other)
  Sender: FDA-Public Use
  Company Number: US-PFIZER INC-2019060801

PATIENT
  Age: 68 Year
  Sex: Female
  Weight: 93 kg

DRUGS (20)
  1. AMLODIPINE BESILATE [Concomitant]
     Active Substance: AMLODIPINE BESYLATE
     Indication: BLOOD PRESSURE ABNORMAL
     Dosage: 5 MG, 1X/DAY
     Route: 048
  2. XGEVA [Concomitant]
     Active Substance: DENOSUMAB
     Indication: METASTASES TO BONE
     Dosage: 120 MG, MONTHLY
     Dates: start: 20190315
  3. ZOMETA [Suspect]
     Active Substance: ZOLEDRONIC ACID
     Indication: BONE DISORDER
     Dosage: UNK
     Route: 042
     Dates: start: 20190108, end: 201903
  4. DULCOEASE [Concomitant]
     Active Substance: DOCUSATE SODIUM
     Indication: CONSTIPATION
     Dosage: 100 MG, 1X/DAY ONE AT NIGHT
  5. SUTENT [Suspect]
     Active Substance: SUNITINIB MALATE
     Indication: RENAL CANCER METASTATIC
     Dosage: 1 DF, CYCLIC (37.5 ONCE A DAY FOR 28 DAYS THEN OFF 2 WEEKS)
     Route: 048
     Dates: start: 20190107
  6. ZOMETA [Suspect]
     Active Substance: ZOLEDRONIC ACID
     Indication: METASTASES TO BONE
  7. FLUOXETINE [Concomitant]
     Active Substance: FLUOXETINE HYDROCHLORIDE
     Indication: AFRICAN TRYPANOSOMIASIS
     Dosage: 10 MG, 1X/DAY AT NIGHT
     Route: 048
  8. PROCHLORPERAZINE. [Concomitant]
     Active Substance: PROCHLORPERAZINE
     Indication: NAUSEA
     Dosage: 10 MG, AS NEEDED (AS NEEDED EVERY 6 HOURS)
  9. PRAVASTATIN. [Concomitant]
     Active Substance: PRAVASTATIN
     Indication: BLOOD CHOLESTEROL ABNORMAL
     Dosage: 80 MG, 1X/DAY AT NIGHT
     Route: 048
  10. ALLI [Concomitant]
     Active Substance: ORLISTAT
     Indication: FAT TISSUE DECREASED
     Dosage: 60 MG, UNK (60MG ONE TO THREE TIMES A DAY)
  11. VITAMIN D3 [Concomitant]
     Active Substance: CHOLECALCIFEROL
     Indication: SUPPLEMENTATION THERAPY
     Dosage: 2000 IU, 2X/DAY
  12. FLUTICASONE PROPIONATE. [Concomitant]
     Active Substance: FLUTICASONE PROPIONATE
     Indication: RHINITIS
     Dosage: 50 UG, 1X/DAY (50 UG TWO SPRAYS IN EACH NOSTRIL ONCE IN THE MORNING)
     Route: 045
  13. LINZESS [Concomitant]
     Active Substance: LINACLOTIDE
     Indication: CONSTIPATION
     Dosage: 145 UG, 1X/DAY IN THE MORNING
     Route: 048
  14. HYDROCODONE [HYDROCODONE BITARTRATE] [Concomitant]
     Active Substance: HYDROCODONE BITARTRATE
     Indication: PAIN
     Dosage: 325 MG, AS NEEDED
  15. CALCIUM WITH D3 [Concomitant]
     Indication: SUPPLEMENTATION THERAPY
     Dosage: 600 MG, 2X/DAY, ONE TABLET IN THE MORNING AND ONE TABLET AT NIGHT
  16. MIRALAX [Concomitant]
     Active Substance: POLYETHYLENE GLYCOL 3350
     Indication: CONSTIPATION
     Dosage: 17 G, AS NEEDED
  17. PEPTO BISMOL [BISMUTH SUBSALICYLATE;CALCIUM CARBONATE] [Concomitant]
     Active Substance: BISMUTH SUBSALICYLATE\CALCIUM CARBONATE
     Dosage: UNK, AS NEEDED
  18. ECOTRIN [Concomitant]
     Active Substance: ASPIRIN
     Indication: ANTIPHOSPHOLIPID SYNDROME
     Dosage: 325 MG, 1X/DAY
     Route: 048
  19. XIIDRA [Concomitant]
     Active Substance: LIFITEGRAST
     Indication: EYE DISORDER
     Dosage: 2 GTT, 2X/DAY
  20. XGEVA [Concomitant]
     Active Substance: DENOSUMAB
     Indication: NEOPLASM MALIGNANT

REACTIONS (23)
  - Renal impairment [Unknown]
  - Nasopharyngitis [Not Recovered/Not Resolved]
  - Anaemia [Unknown]
  - Feeling abnormal [Unknown]
  - Weight increased [Unknown]
  - Flank pain [Recovered/Resolved]
  - Productive cough [Unknown]
  - Palmar-plantar erythrodysaesthesia syndrome [Unknown]
  - Stomatitis [Recovering/Resolving]
  - Pharyngeal oedema [Not Recovered/Not Resolved]
  - Malaise [Unknown]
  - Oropharyngeal pain [Recovering/Resolving]
  - Confusional state [Unknown]
  - Sputum discoloured [Unknown]
  - Pain in extremity [Unknown]
  - Abdominal pain [Unknown]
  - Immune system disorder [Unknown]
  - Fatigue [Unknown]
  - Nasal discharge discolouration [Unknown]
  - Cough [Unknown]
  - Aphonia [Unknown]
  - Dyspepsia [Unknown]
  - Headache [Recovering/Resolving]

NARRATIVE: CASE EVENT DATE: 2019
